FAERS Safety Report 5885346-2 (Version None)
Quarter: 2008Q3

REPORT INFORMATION
  Report Type: 
  Country: None (occurrence: None)
  Receive Date: 20080912
  Receipt Date: 20080902
  Transmission Date: 20090109
  Serious: Yes (Hospitalization)
  Sender: FDA-Public Use
  Company Number: 2008BI022931

PATIENT
  Age: 44 Year
  Sex: Female
  Weight: 63.5036 kg

DRUGS (1)
  1. TYSABRI [Suspect]
     Indication: MULTIPLE SCLEROSIS
     Dosage: 300 MG; QM; IV
     Route: 042
     Dates: start: 20070801

REACTIONS (7)
  - DISORIENTATION [None]
  - DYSPNOEA [None]
  - FALL [None]
  - MEMORY IMPAIRMENT [None]
  - MIGRAINE [None]
  - RENAL FAILURE ACUTE [None]
  - RHABDOMYOLYSIS [None]
